FAERS Safety Report 22050992 (Version 1)
Quarter: 2023Q1

REPORT INFORMATION
  Report Type: Spontaneous
  Country: US (occurrence: None)
  Receive Date: 20230301
  Receipt Date: 20230301
  Transmission Date: 20230418
  Serious: No
  Sender: FDA-Public Use
  Company Number: None

PATIENT
  Sex: Female

DRUGS (1)
  1. COSENTYX [Suspect]
     Active Substance: SECUKINUMAB
     Indication: Rheumatoid arthritis
     Dosage: 150MG EVERY 4 WEEKS SQ
     Route: 058
     Dates: start: 20221212

REACTIONS (2)
  - Therapeutic product effect decreased [None]
  - Arthralgia [None]
